FAERS Safety Report 9537145 (Version 1)
Quarter: 2013Q3

REPORT INFORMATION
  Report Type: Spontaneous
  Country: BR (occurrence: BR)
  Receive Date: 20130919
  Receipt Date: 20130919
  Transmission Date: 20140515
  Serious: Yes (Other)
  Sender: FDA-Public Use
  Company Number: BR-PFIZER INC-2013268004

PATIENT
  Age: 72 Year
  Sex: Female
  Weight: 78 kg

DRUGS (5)
  1. FRONTAL XR [Suspect]
     Indication: ANXIETY
     Dosage: 1 MG (ONE TABLET), 2X/DAY
     Route: 048
     Dates: start: 20000114
  2. FRONTAL XR [Suspect]
     Indication: NERVOUS SYSTEM DISORDER
  3. FRONTAL [Suspect]
     Indication: ANXIETY
     Dosage: 1 MG (ONE TABLET), 2X/DAY
     Route: 048
     Dates: start: 20000114
  4. FRONTAL [Suspect]
     Indication: NERVOUS SYSTEM DISORDER
  5. PAMELOR [Concomitant]
     Indication: DEPRESSION
     Dosage: 10 MG (ONE TABLET), 1X/DAY

REACTIONS (6)
  - Cerebrovascular accident [Not Recovered/Not Resolved]
  - Aneurysm [Not Recovered/Not Resolved]
  - Blood pressure increased [Unknown]
  - Fibromyalgia [Unknown]
  - Influenza [Not Recovered/Not Resolved]
  - Feeling abnormal [Not Recovered/Not Resolved]
